FAERS Safety Report 21149527 (Version 3)
Quarter: 2022Q3

REPORT INFORMATION
  Report Type: Spontaneous
  Country: JP (occurrence: JP)
  Receive Date: 20220729
  Receipt Date: 20220921
  Transmission Date: 20221027
  Serious: Yes (Hospitalization, Other)
  Sender: FDA-Public Use
  Company Number: JP-OTSUKA-2022_036070

PATIENT
  Age: 62 Year
  Sex: Female

DRUGS (9)
  1. SAMSCA [Suspect]
     Active Substance: TOLVAPTAN
     Indication: Congenital cystic kidney disease
     Dosage: 45MG/DAY
     Route: 048
     Dates: start: 20220707, end: 20220707
  2. SAMSCA [Suspect]
     Active Substance: TOLVAPTAN
     Dosage: 15MG/DAY
     Route: 048
     Dates: start: 20220705, end: 20220705
  3. SAMSCA [Suspect]
     Active Substance: TOLVAPTAN
     Dosage: 60MG/DAY
     Route: 048
     Dates: start: 20220706, end: 20220706
  4. DAPRODUSTAT [Suspect]
     Active Substance: DAPRODUSTAT
     Indication: Product used for unknown indication
     Dosage: UNK
     Route: 065
  5. AZILSARTAN KAMEDOXOMIL [Concomitant]
     Active Substance: AZILSARTAN KAMEDOXOMIL
     Indication: Product used for unknown indication
     Dosage: 20 MG/DAY
     Route: 048
     Dates: start: 20220705, end: 20220720
  6. NIFEDIPINE [Concomitant]
     Active Substance: NIFEDIPINE
     Indication: Product used for unknown indication
     Dosage: 40 MG/DAY
     Route: 048
     Dates: start: 20220511
  7. LINZESS [Concomitant]
     Active Substance: LINACLOTIDE
     Indication: Product used for unknown indication
     Dosage: 0.25 MG/DAY
     Route: 048
     Dates: start: 20220511
  8. FEBUXOSTAT [Concomitant]
     Active Substance: FEBUXOSTAT
     Indication: Product used for unknown indication
     Dosage: 10 MG/DAY
     Route: 048
     Dates: start: 20220622
  9. SODIUM FERROUS CITRATE [Concomitant]
     Active Substance: SODIUM FERROUS CITRATE
     Indication: Product used for unknown indication
     Dosage: 100 MG/DAY
     Route: 048
     Dates: start: 20220707, end: 20220708

REACTIONS (6)
  - Water intoxication [Unknown]
  - Haemoglobin increased [Unknown]
  - Hyponatraemia [Recovered/Resolved]
  - Urine output increased [Unknown]
  - Polydipsia [Unknown]
  - Drug titration error [Unknown]

NARRATIVE: CASE EVENT DATE: 20220706
